FAERS Safety Report 25926589 (Version 1)
Quarter: 2025Q4

REPORT INFORMATION
  Report Type: Spontaneous
  Country: US (occurrence: None)
  Receive Date: 20251012
  Receipt Date: 20251012
  Transmission Date: 20260117
  Serious: Yes (Disabling)
  Sender: FDA-CTU
  Company Number: None

PATIENT
  Age: 57 Year
  Sex: Female
  Weight: 69.75 kg

DRUGS (9)
  1. STEM CELL, EXOSOME, OR GROWTH FACTOR DERIVED UNAPPROVED PRODUCTS [Suspect]
     Active Substance: STEM CELL, EXOSOME, OR GROWTH FACTOR DERIVED UNAPPROVED PRODUCTS
     Indication: Muscle strain
     Dosage: OTHER QUANTITY : 6 ML;?OTHER FREQUENCY : 1 TIME ONLY;?OTHER ROUTE : INJECTED INTO SHOULDER JOINT;?
     Route: 058
     Dates: start: 20250822, end: 20250822
  2. LEVOXYL [Concomitant]
     Active Substance: LEVOTHYROXINE SODIUM
  3. MONTELUKAST [Concomitant]
     Active Substance: MONTELUKAST
  4. ALENDRONATE [Concomitant]
     Active Substance: ALENDRONATE SODIUM
  5. ATIVAN [Concomitant]
     Active Substance: LORAZEPAM
  6. PROPRANOLOL [Concomitant]
     Active Substance: PROPRANOLOL HYDROCHLORIDE
  7. ALEVE [Concomitant]
     Active Substance: NAPROXEN SODIUM
  8. MAGNESIUM [Concomitant]
     Active Substance: MAGNESIUM
  9. SENNA [Concomitant]
     Active Substance: SENNOSIDES

REACTIONS (11)
  - Arthralgia [None]
  - Pain in extremity [None]
  - Tremor [None]
  - Amnesia [None]
  - Aphasia [None]
  - Thinking abnormal [None]
  - Hypertension [None]
  - Anxiety [None]
  - Headache [None]
  - Vision blurred [None]
  - Insomnia [None]

NARRATIVE: CASE EVENT DATE: 20250822
